FAERS Safety Report 6960334-3 (Version None)
Quarter: 2010Q3

REPORT INFORMATION
  Report Type: 
  Country: None (occurrence: None)
  Receive Date: 20100901
  Receipt Date: 20100826
  Transmission Date: 20110219
  Serious: Yes (Death)
  Sender: FDA-Public Use
  Company Number: JP-SANOFI-AVENTIS-2010SA051589

PATIENT
  Sex: Male
  Weight: 60 kg

DRUGS (6)
  1. APIDRA [Suspect]
     Indication: DIABETES MELLITUS
     Dosage: 12 UNITS/DAY (6-6-0) DOSE:6 UNIT(S)
     Route: 058
     Dates: start: 20100630, end: 20100705
  2. BASEN [Concomitant]
     Indication: DIABETES MELLITUS
     Route: 048
     Dates: start: 20090515, end: 20100207
  3. JANUVIA [Concomitant]
     Indication: DIABETES MELLITUS
     Route: 048
     Dates: start: 20100609, end: 20100616
  4. AMARYL [Concomitant]
     Indication: DIABETES MELLITUS
     Route: 048
     Dates: start: 20100616, end: 20100623
  5. INSULIN HUMAN [Concomitant]
     Indication: DIABETES MELLITUS
     Dosage: 18 UNITS/DAY (14-0-4)
     Route: 058
     Dates: start: 20100113, end: 20100413
  6. LANTUS [Concomitant]
     Indication: DIABETES MELLITUS
     Dosage: 10 UNITS/DAY (0-0-10) DOSE:10 UNIT(S)
     Route: 058
     Dates: start: 20100621, end: 20100704

REACTIONS (1)
  - DEATH [None]
